FAERS Safety Report 13210203 (Version 1)
Quarter: 2017Q1

REPORT INFORMATION
  Report Type: Spontaneous
  Country: US (occurrence: US)
  Receive Date: 20170209
  Receipt Date: 20170209
  Transmission Date: 20170428
  Serious: No
  Sender: FDA-Public Use
  Company Number: None

PATIENT
  Age: 67 Year
  Sex: Male

DRUGS (2)
  1. CAPECITABINE 150MG ACCORD HEALTHCARE [Suspect]
     Active Substance: CAPECITABINE
     Indication: PANCREATIC CARCINOMA
     Dosage: 3 TABS OF 150MG ALONG WITH 2 TABS OF 500MG  TWICE A DAY FOR 21 DAYS ON THEN 7 DAYS OFF BY MOUTH
     Route: 048
     Dates: start: 201608
  2. CAPECITABINE 500MG ACCORD HEALTHCARE, INC [Suspect]
     Active Substance: CAPECITABINE
     Indication: PANCREATIC CARCINOMA
     Dosage: 3 TABS OF 150MG ALONG WITH 2 TABS OF 500MG  TWICE A DAY FOR 21 DAYS ON THEN 7 DAYS OFF BY MOUTH
     Route: 048
     Dates: start: 201608

REACTIONS (2)
  - Platelet count decreased [None]
  - White blood cell count decreased [None]
